FAERS Safety Report 20765560 (Version 1)
Quarter: 2022Q2

REPORT INFORMATION
  Report Type: Spontaneous
  Country: US (occurrence: US)
  Receive Date: 20220428
  Receipt Date: 20220428
  Transmission Date: 20220721
  Serious: No
  Sender: FDA-Public Use
  Company Number: US-SA-SAC20220425000557

PATIENT
  Age: 50 Year
  Sex: Male

DRUGS (13)
  1. DUPIXENT [Suspect]
     Active Substance: DUPILUMAB
     Indication: Dermatitis atopic
     Dosage: 300 MG, QOW
     Route: 058
     Dates: start: 20220218
  2. ROSUVASTATIN CALCIUM [Concomitant]
     Active Substance: ROSUVASTATIN CALCIUM
  3. TESTOSTERONE CYPIONATE [Concomitant]
     Active Substance: TESTOSTERONE CYPIONATE
  4. ASPIRIN [Concomitant]
     Active Substance: ASPIRIN
  5. KRILL OIL [Concomitant]
     Active Substance: DIETARY SUPPLEMENT\KRILL OIL
  6. VITAMIN D3 [Concomitant]
     Active Substance: CHOLECALCIFEROL
  7. ZINC [Concomitant]
     Active Substance: ZINC
  8. VITAMIN C [Concomitant]
     Active Substance: ASCORBIC ACID
  9. EUCRISA [Concomitant]
     Active Substance: CRISABOROLE
  10. CLOBETASOL [Concomitant]
     Active Substance: CLOBETASOL
  11. VITAMINS NOS [Concomitant]
     Active Substance: VITAMINS
  12. VANICREAM [Concomitant]
     Active Substance: TITANIUM DIOXIDE\ZINC OXIDE
  13. CERAVE ITCH RELIEF MOISTURIZING [Concomitant]
     Active Substance: PRAMOXINE HYDROCHLORIDE

REACTIONS (1)
  - Headache [Recovered/Resolved]
